FAERS Safety Report 14063433 (Version 10)
Quarter: 2022Q3

REPORT INFORMATION
  Report Type: Spontaneous
  Country: CA (occurrence: CA)
  Receive Date: 20171009
  Receipt Date: 20220815
  Transmission Date: 20221027
  Serious: Yes (Other)
  Sender: FDA-Public Use
  Company Number: CA-PFIZER INC-2017264865

PATIENT
  Age: 11 Year
  Sex: Female

DRUGS (10)
  1. GENOTROPIN [Suspect]
     Active Substance: SOMATROPIN
     Indication: Short stature
     Dosage: 1.0 MG, 6 TIMES PER WEEK
     Route: 058
     Dates: start: 20170612
  2. GENOTROPIN [Suspect]
     Active Substance: SOMATROPIN
     Dosage: 1.0 MG, 6 TIMES PER WEEK
     Route: 058
     Dates: start: 20170612
  3. GENOTROPIN [Suspect]
     Active Substance: SOMATROPIN
     Dosage: 1.0 MG, 6 TIMES PER WEEK
     Route: 058
     Dates: start: 20170612, end: 201804
  4. GENOTROPIN [Suspect]
     Active Substance: SOMATROPIN
     Dosage: 1.2 MG, 6X/WEEK
     Route: 058
     Dates: start: 201804, end: 201908
  5. GENOTROPIN [Suspect]
     Active Substance: SOMATROPIN
     Dosage: 1.4 MG, 6X/WEEK
     Route: 058
     Dates: start: 201908, end: 2022
  6. GENOTROPIN [Suspect]
     Active Substance: SOMATROPIN
     Dosage: 1.8 MG, 6X/WEEK
     Route: 058
     Dates: start: 2022, end: 2022
  7. ADVIL [Concomitant]
     Active Substance: IBUPROFEN
     Indication: Headache
     Dosage: UNK
  8. ADVIL [Concomitant]
     Active Substance: IBUPROFEN
     Dosage: 1 DF, AS NEEDED
     Route: 065
  9. EMLA [Concomitant]
     Active Substance: LIDOCAINE\PRILOCAINE
     Indication: Local anaesthesia
     Dosage: UNK, 6 TIMES PER WEEK (20-30 MINUTES PRIOR TO SOMATROPIN INJECTION)
     Route: 061
  10. EMLA [Concomitant]
     Active Substance: LIDOCAINE\PRILOCAINE
     Dosage: 1 DF APPLICATION PRIOR TO GENOTROPIN INJECTION
     Route: 061

REACTIONS (7)
  - Sinusitis [Unknown]
  - Drug ineffective [Unknown]
  - Wrong technique in product usage process [Unknown]
  - Injection site bruising [Unknown]
  - Product dose omission issue [Unknown]
  - Crying [Unknown]
  - Headache [Unknown]

NARRATIVE: CASE EVENT DATE: 20170901
